FAERS Safety Report 12291450 (Version 8)
Quarter: 2018Q2

REPORT INFORMATION
  Report Type: Spontaneous
  Country: FR (occurrence: FR)
  Receive Date: 20160421
  Receipt Date: 20180515
  Transmission Date: 20180711
  Serious: Yes (Disabling, Congenital Anomaly, Other)
  Sender: FDA-Public Use
  Company Number: FR-ABBVIE-16P-056-1610164-00

PATIENT
  Sex: Male

DRUGS (6)
  1. VALPROATE SODIUM. [Suspect]
     Active Substance: VALPROATE SODIUM
     Route: 065
  2. VALIUM [Concomitant]
     Active Substance: DIAZEPAM
     Indication: PRODUCT USED FOR UNKNOWN INDICATION
  3. DEPAKINE [Suspect]
     Active Substance: VALPROATE SODIUM
     Indication: MATERNAL EXPOSURE TIMING UNSPECIFIED
     Route: 064
  4. MICROPAKINE [Suspect]
     Active Substance: VALPROIC ACID
     Indication: EPILEPSY
     Route: 065
  5. SPECIAFOLDINE [Suspect]
     Active Substance: FOLIC ACID
     Indication: MATERNAL EXPOSURE TIMING UNSPECIFIED
     Route: 064
  6. VALPROATE SODIUM. [Suspect]
     Active Substance: VALPROATE SODIUM
     Indication: EPILEPSY
     Route: 065
     Dates: start: 200110

REACTIONS (31)
  - Foot deformity [Unknown]
  - Dysmorphism [Unknown]
  - Speech disorder [Unknown]
  - Respiratory distress [Unknown]
  - Mental disorder [Not Recovered/Not Resolved]
  - Psychomotor retardation [Unknown]
  - Plagiocephaly [Unknown]
  - Respiratory distress [Recovered/Resolved]
  - Fall [Unknown]
  - Polydactyly [Unknown]
  - Hypotonia [Unknown]
  - Epilepsy [Unknown]
  - Knee deformity [Unknown]
  - Prognathism [Unknown]
  - Incontinence [Not Recovered/Not Resolved]
  - Pectus excavatum [Unknown]
  - Talipes [Unknown]
  - Tooth malformation [Unknown]
  - Dysplasia [Unknown]
  - Foetal exposure during pregnancy [Unknown]
  - Foetal anticonvulsant syndrome [Unknown]
  - Intellectual disability [Unknown]
  - Scoliosis [Unknown]
  - Intellectual disability [Unknown]
  - Strabismus [Unknown]
  - Gastrointestinal disorder [Unknown]
  - Electroencephalogram abnormal [Unknown]
  - Ataxia [Unknown]
  - Autism spectrum disorder [Not Recovered/Not Resolved]
  - Personality disorder [Unknown]
  - Dependence [Unknown]

NARRATIVE: CASE EVENT DATE: 1998
